FAERS Safety Report 7508478-1 (Version None)
Quarter: 2011Q2

REPORT INFORMATION
  Report Type: 
  Country: None (occurrence: None)
  Receive Date: 20110527
  Receipt Date: 20110523
  Transmission Date: 20111010
  Serious: Yes (Other)
  Sender: FDA-Public Use
  Company Number: FR-PFIZER INC-2011094825

PATIENT
  Age: 33 Year
  Sex: Male

DRUGS (2)
  1. VARENICLINE TARTRATE [Suspect]
     Dosage: 2 MG/DAY
     Route: 048
     Dates: start: 20110426, end: 20110502
  2. VARENICLINE TARTRATE [Suspect]
     Indication: SMOKING CESSATION THERAPY
     Dosage: UNK
     Route: 048
     Dates: start: 20110418, end: 20110401

REACTIONS (4)
  - KETONURIA [None]
  - VOMITING [None]
  - ABDOMINAL PAIN [None]
  - GLYCOSURIA [None]
